FAERS Safety Report 17972496 (Version 2)
Quarter: 2022Q2

REPORT INFORMATION
  Report Type: Spontaneous
  Country: BE (occurrence: BE)
  Receive Date: 20200702
  Receipt Date: 20220628
  Transmission Date: 20220721
  Serious: Yes (Other)
  Sender: FDA-Public Use
  Company Number: BE-GSKCCFEMEA-CASE-00941477_AE-28661

PATIENT

DRUGS (1)
  1. NUCALA [Suspect]
     Active Substance: MEPOLIZUMAB
     Indication: Product used for unknown indication
     Dosage: 100 MG, Z,(MONTHLY)
     Dates: start: 20180207

REACTIONS (2)
  - Pain in extremity [Recovered/Resolved]
  - Gait disturbance [Recovered/Resolved]
